FAERS Safety Report 14053870 (Version 3)
Quarter: 2017Q4

REPORT INFORMATION
  Report Type: Spontaneous
  Country: US (occurrence: US)
  Receive Date: 20171005
  Receipt Date: 20171017
  Transmission Date: 20180321
  Serious: Yes (Other)
  Sender: FDA-Public Use
  Company Number: US-TEVA-813320ACC

PATIENT
  Sex: Female
  Weight: 66.28 kg

DRUGS (2)
  1. TAKE ACTION [Suspect]
     Active Substance: LEVONORGESTREL
     Indication: POST COITAL CONTRACEPTION
     Dates: start: 20170222, end: 20170222
  2. IRON [Concomitant]
     Active Substance: IRON

REACTIONS (2)
  - Maternal exposure during pregnancy [Unknown]
  - Pregnancy after post coital contraception [Unknown]
